FAERS Safety Report 17199114 (Version 1)
Quarter: 2019Q4

REPORT INFORMATION
  Report Type: Spontaneous
  Country: US (occurrence: US)
  Receive Date: 20191225
  Receipt Date: 20191225
  Transmission Date: 20200122
  Serious: Yes (Hospitalization, Other)
  Sender: FDA-Public Use
  Company Number: US-AMNEAL PHARMACEUTICALS-2019-AMRX-03315

PATIENT
  Sex: Male

DRUGS (1)
  1. RYTARY [Suspect]
     Active Substance: CARBIDOPA\LEVODOPA
     Indication: PRODUCT USED FOR UNKNOWN INDICATION
     Dosage: 10 CAPSULES, QD, 3 CAPSULES AT 6AM AND 6 PM THEN 2 CAPSULES 10AM AND 2PM
     Route: 048

REACTIONS (2)
  - Weight decreased [Unknown]
  - Brain neoplasm malignant [Unknown]
